FAERS Safety Report 16425604 (Version 4)
Quarter: 2019Q2

REPORT INFORMATION
  Report Type: Report from Study
  Country: None (occurrence: CH)
  Receive Date: 20190613
  Receipt Date: 20190621
  Transmission Date: 20190711
  Serious: Yes (Death, Hospitalization)
  Sender: FDA-Public Use
  Company Number: CH-ABBVIE-19S-151-2818783-00

PATIENT
  Age: 74 Year
  Sex: Male

DRUGS (4)
  1. DUODOPA [Suspect]
     Active Substance: CARBIDOPA\LEVODOPA
     Dosage: MD: 7.3 ML, CRD: 7.1 ML/H, CRN: 5 ML/H, ED: 2 ML?24 H THERAPY
     Route: 050
     Dates: start: 20190520
  2. DUODOPA [Suspect]
     Active Substance: CARBIDOPA\LEVODOPA
     Indication: PARKINSON^S DISEASE
     Route: 050
     Dates: start: 20190325, end: 20190415
  3. DUODOPA [Suspect]
     Active Substance: CARBIDOPA\LEVODOPA
     Dosage: MD: 7.3 ML, CRD: 7.1 ML/H, CRN: 4.6 ML/H, ED: 2 ML?24 H THERAPY
     Route: 050
     Dates: start: 20190415, end: 20190520
  4. DUODOPA [Suspect]
     Active Substance: CARBIDOPA\LEVODOPA
     Dosage: 2 CASSETTES PER DAY
     Route: 050

REACTIONS (9)
  - Epilepsy [Recovered/Resolved]
  - Device kink [Unknown]
  - Suicidal ideation [Fatal]
  - Dehydration [Fatal]
  - General physical health deterioration [Fatal]
  - Muscle spasms [Unknown]
  - Akinesia [Not Recovered/Not Resolved]
  - Device dislocation [Recovered/Resolved]
  - Malnutrition [Fatal]

NARRATIVE: CASE EVENT DATE: 20190611
